FAERS Safety Report 12701300 (Version 2)
Quarter: 2016Q3

REPORT INFORMATION
  Report Type: Spontaneous
  Country: BE (occurrence: BE)
  Receive Date: 20160831
  Receipt Date: 20160906
  Transmission Date: 20161109
  Serious: Yes (Other)
  Sender: FDA-Public Use
  Company Number: BE-ROCHE-1820854

PATIENT
  Age: 56 Year
  Sex: Female

DRUGS (3)
  1. LUCENTIS [Suspect]
     Active Substance: RANIBIZUMAB
     Dosage: UNK
     Route: 065
     Dates: start: 20160718, end: 20160718
  2. LUCENTIS [Suspect]
     Active Substance: RANIBIZUMAB
     Indication: RETINOPATHY
     Dosage: UNK
     Route: 065
     Dates: start: 201603, end: 201603
  3. FLAGYL [Suspect]
     Active Substance: METRONIDAZOLE\METRONIDAZOLE HYDROCHLORIDE
     Indication: VAGINAL INFECTION
     Route: 065

REACTIONS (18)
  - Myalgia [Unknown]
  - Tongue paralysis [Recovering/Resolving]
  - Nasal congestion [Recovering/Resolving]
  - Hypothyroidism [Not Recovered/Not Resolved]
  - Retinopathy [Unknown]
  - Urticaria [Recovered/Resolved]
  - Inappropriate schedule of drug administration [Unknown]
  - Hemiplegia [Recovering/Resolving]
  - Dyspnoea [Recovering/Resolving]
  - Grip strength decreased [Recovering/Resolving]
  - Anxiety [Recovering/Resolving]
  - Musculoskeletal stiffness [Unknown]
  - Vaginal infection [Recovered/Resolved]
  - Pain [Recovering/Resolving]
  - Dysaesthesia [Unknown]
  - Feeling abnormal [Unknown]
  - Muscular weakness [Unknown]
  - Gait disturbance [Recovering/Resolving]

NARRATIVE: CASE EVENT DATE: 201607
